FAERS Safety Report 7103379 (Version 7)
Quarter: 2013Q1

REPORT INFORMATION
  Report Type: Report from Study
  Country: JP (occurrence: JP)
  Receive Date: 20090902
  Receipt Date: 20130115
  Transmission Date: 20140127
  Serious: Yes (Death, Life-Threatening, Hospitalization, Other)
  Sender: FDA-Public Use
  Company Number: JP-BAYER-200913090BYL

PATIENT
  Age: 54 Year
  Sex: Male
  Weight: 40.5 kg

DRUGS (11)
  1. NEXAVAR [Suspect]
     Indication: HEPATOCELLULAR CARCINOMA
     Dosage: 400 MG, BID
     Route: 048
     Dates: start: 20090810, end: 20090910
  2. NEXAVAR [Suspect]
     Indication: HEPATOCELLULAR CARCINOMA
     Dosage: 600 MG, QD
     Route: 048
     Dates: start: 20090912, end: 20090925
  3. TOTAL PARENTERAL NUTRITION [Concomitant]
     Indication: DECREASED APPETITE
     Dosage: 1806 ML (DAILY DOSE),  INTRAVENOUS
     Route: 042
     Dates: start: 20090908
  4. ELEMENMIC [Concomitant]
     Indication: DECREASED APPETITE
     Dosage: 2 ML (DAILY DOSE),  INTRAVENOUS
     Route: 042
     Dates: start: 20090908
  5. VOLTAREN [Concomitant]
     Dosage: SINCE BEFORE NEXAVAR ADMINISTRATION
     Route: 054
  6. DUROTEP [Concomitant]
     Dosage: SINCE BEFORE NEXAVAR ADMINISTRATION
     Route: 062
  7. BISMUTH SUBNITRATE [Concomitant]
     Indication: DIARRHOEA
     Dosage: 2 G (DAILY DOSE), , ORAL
     Route: 048
     Dates: start: 20090829
  8. TAKEPRON [Concomitant]
     Dosage: SINCE BEFORE NEXAVAR ADMINISTRATION
     Route: 048
  9. MYSLEE [Concomitant]
     Dosage: SINCE BEFORE NEXAVAR ADMINISTRATION
     Route: 048
  10. ALBUMIN TANNATE [Concomitant]
     Indication: DIARRHOEA
     Dosage: 2.0 G (DAILY DOSE), , ORAL
     Route: 048
     Dates: start: 20090829
  11. OXINORM [Concomitant]
     Dosage: 5 MG, QD
     Route: 048
     Dates: start: 20090918, end: 20090918

REACTIONS (12)
  - Metastases to bone [Recovered/Resolved]
  - Pneumonia [Fatal]
  - Anaemia [Recovered/Resolved]
  - Platelet count decreased [Not Recovered/Not Resolved]
  - Blood bilirubin increased [Recovering/Resolving]
  - Bilirubin conjugated increased [Recovering/Resolving]
  - Blood alkaline phosphatase increased [Recovering/Resolving]
  - Decreased appetite [Not Recovered/Not Resolved]
  - Diarrhoea [Not Recovered/Not Resolved]
  - Constipation [Not Recovered/Not Resolved]
  - Hepatic function abnormal [Not Recovered/Not Resolved]
  - Ascites [Not Recovered/Not Resolved]
